FAERS Safety Report 5192552-1 (Version None)
Quarter: 2006Q4

REPORT INFORMATION
  Report Type: 
  Country: None (occurrence: None)
  Receive Date: 20061220
  Receipt Date: 20061205
  Transmission Date: 20070319
  Serious: Yes (Hospitalization)
  Sender: FDA-Public Use
  Company Number: CERZ-11433

PATIENT
  Age: 3 Year
  Sex: Male
  Weight: 13 kg

DRUGS (12)
  1. CEREZYME [Suspect]
     Indication: GAUCHER'S DISEASE
     Dosage: 92 UG/KG Q2WKS IV
     Route: 042
     Dates: start: 20020909
  2. CLONAZEPAM [Concomitant]
  3. PHENOBARBITAL TAB [Concomitant]
  4. DIAZEPAM [Concomitant]
  5. DANTROLENE SODIUM [Concomitant]
  6. TPN [Concomitant]
  7. VALPROATE SODIUM [Concomitant]
  8. TRICHLORETHYL PHOSPHATE SODIUM [Concomitant]
  9. LACTOMIN [Concomitant]
  10. ZINC OXIDE [Concomitant]
  11. MIXED KILLED BACTERIA PREPARATIONS [Concomitant]
  12. GENTAMICIN SULFATE [Concomitant]

REACTIONS (1)
  - PNEUMONIA [None]
